FAERS Safety Report 5399021-4 (Version None)
Quarter: 2007Q3

REPORT INFORMATION
  Report Type: 
  Country: None (occurrence: None)
  Receive Date: 20070727
  Receipt Date: 20070717
  Transmission Date: 20080115
  Serious: Yes (Hospitalization)
  Sender: FDA-Public Use
  Company Number: JP-ROCHE-487082

PATIENT
  Age: 17 Year
  Sex: Female
  Weight: 47 kg

DRUGS (2)
  1. TAMIFLU [Suspect]
     Dosage: DOSE INCREASED.
     Route: 048
     Dates: start: 20070306, end: 20070306
  2. TAMIFLU [Suspect]
     Route: 048
     Dates: start: 20070305, end: 20070305

REACTIONS (1)
  - LOSS OF CONSCIOUSNESS [None]
